FAERS Safety Report 21127565 (Version 1)
Quarter: 2022Q3

REPORT INFORMATION
  Report Type: Spontaneous
  Country: US (occurrence: US)
  Receive Date: 20220725
  Receipt Date: 20220725
  Transmission Date: 20221027
  Serious: Yes (Other)
  Sender: FDA-Public Use
  Company Number: US-SA-SAC20220719001037

PATIENT

DRUGS (1)
  1. LARONIDASE [Suspect]
     Active Substance: LARONIDASE
     Indication: Mucopolysaccharidosis I
     Dosage: 14.5 , WEEKLY
     Route: 042
     Dates: start: 20220203

REACTIONS (3)
  - Seizure [Not Recovered/Not Resolved]
  - Apraxia [Not Recovered/Not Resolved]
  - Aphasia [Not Recovered/Not Resolved]
